FAERS Safety Report 10358805 (Version 1)
Quarter: 2014Q3

REPORT INFORMATION
  Report Type: Spontaneous
  Country: US (occurrence: None)
  Receive Date: 20140730
  Receipt Date: 20140730
  Transmission Date: 20150326
  Serious: No
  Sender: FDA-Public Use
  Company Number: None

PATIENT
  Age: 64 Year
  Sex: Male
  Weight: 104.33 kg

DRUGS (1)
  1. INVOKANA [Suspect]
     Active Substance: CANAGLIFLOZIN
     Indication: TYPE 2 DIABETES MELLITUS
     Dosage: 1 TABLET ONCE DAILY TAKEN BY MOUTH
     Route: 048

REACTIONS (7)
  - Arthralgia [None]
  - Pollakiuria [None]
  - Dizziness [None]
  - Dysuria [None]
  - Genital tract inflammation [None]
  - Fear [None]
  - Myalgia [None]

NARRATIVE: CASE EVENT DATE: 20140712
